FAERS Safety Report 12278506 (Version 1)
Quarter: 2016Q2

REPORT INFORMATION
  Report Type: Spontaneous
  Country: US (occurrence: US)
  Receive Date: 20160418
  Receipt Date: 20160418
  Transmission Date: 20160815
  Serious: Yes (Life-Threatening)
  Sender: FDA-Public Use
  Company Number: US-STANDARD HOMEOPATHIC COMPANY-1050690

PATIENT
  Age: 29 Month
  Sex: Male

DRUGS (1)
  1. BABY TEETHING GEL (HYLAND HOMEOPATHIC) [Suspect]
     Active Substance: ATROPA BELLADONNA\CALCIUM PHOSPHATE\CHAMOMILE\COFFEA ARABICA FRUIT
     Indication: TEETHING
     Route: 048
     Dates: start: 20160406, end: 20160406

REACTIONS (5)
  - Screaming [None]
  - Choking [Recovering/Resolving]
  - Aspiration [Recovering/Resolving]
  - Crying [None]
  - Dyspnoea [None]

NARRATIVE: CASE EVENT DATE: 20160406
